FAERS Safety Report 16171406 (Version 1)
Quarter: 2019Q2

REPORT INFORMATION
  Report Type: Spontaneous
  Country: PT (occurrence: PT)
  Receive Date: 20190408
  Receipt Date: 20190408
  Transmission Date: 20190711
  Serious: Yes (Other)
  Sender: FDA-Public Use
  Company Number: PT-SHIRE-PT201911167

PATIENT

DRUGS (1)
  1. 476 (MESALAZINE/MESALAMINE) [Suspect]
     Active Substance: MESALAMINE
     Indication: COLITIS ULCERATIVE
     Dosage: 2 G, DAILY
     Route: 065

REACTIONS (2)
  - Pulmonary toxicity [Recovered/Resolved]
  - Organising pneumonia [Recovered/Resolved]

NARRATIVE: CASE EVENT DATE: 2017
